FAERS Safety Report 7579889-3 (Version None)
Quarter: 2011Q2

REPORT INFORMATION
  Report Type: 
  Country: None (occurrence: None)
  Receive Date: 20110629
  Receipt Date: 20110616
  Transmission Date: 20111010
  Serious: Yes (Other)
  Sender: FDA-Public Use
  Company Number: IN-ELI_LILLY_AND_COMPANY-IN201106004527

PATIENT
  Age: 75 Year
  Sex: Male

DRUGS (3)
  1. CALCIUM CARBONATE [Concomitant]
     Indication: SUPPLEMENTATION THERAPY
  2. VITAMIN D [Concomitant]
     Indication: SUPPLEMENTATION THERAPY
  3. FORTEO [Suspect]
     Indication: OSTEOPOROSIS
     Dosage: 20 UG, QD
     Route: 058
     Dates: start: 20101101

REACTIONS (2)
  - HEART VALVE STENOSIS [None]
  - HEART VALVE CALCIFICATION [None]
